FAERS Safety Report 14012293 (Version 2)
Quarter: 2018Q1

REPORT INFORMATION
  Report Type: Spontaneous
  Country: US (occurrence: US)
  Receive Date: 20170926
  Receipt Date: 20180206
  Transmission Date: 20180508
  Serious: Yes (Other)
  Sender: FDA-Public Use
  Company Number: US-PFIZER INC-2017413900

PATIENT
  Age: 74 Year
  Sex: Female
  Weight: 79.38 kg

DRUGS (4)
  1. CYMBALTA [Interacting]
     Active Substance: DULOXETINE HYDROCHLORIDE
     Dosage: UNK
  2. XELJANZ [Interacting]
     Active Substance: TOFACITINIB CITRATE
     Indication: SCLERODERMA
  3. XELJANZ [Suspect]
     Active Substance: TOFACITINIB CITRATE
     Indication: RHEUMATOID ARTHRITIS
     Dosage: 5 MG, 2X/DAY (ONE IN THE MORNING AND ONE AT NIGHT)
     Route: 048
  4. ARAVA [Interacting]
     Active Substance: LEFLUNOMIDE
     Dosage: 20 MG, 1X/DAY (IN AFTERNOON)
     Route: 048

REACTIONS (2)
  - Drug interaction [Unknown]
  - Reynold^s syndrome [Not Recovered/Not Resolved]
